FAERS Safety Report 7992049-7 (Version None)
Quarter: 2011Q4

REPORT INFORMATION
  Report Type: 
  Country: None (occurrence: None)
  Receive Date: 20111219
  Receipt Date: 20110906
  Transmission Date: 20120403
  Serious: No
  Sender: FDA-Public Use
  Company Number: US-ASTRAZENECA-2011SE53397

PATIENT
  Sex: Male
  Weight: 90.7 kg

DRUGS (5)
  1. CRESTOR [Suspect]
     Indication: BLOOD CHOLESTEROL INCREASED
     Route: 048
  2. FISH OIL [Concomitant]
  3. CLONASE [Concomitant]
  4. ANTACID [Concomitant]
  5. IBUPROFEN [Concomitant]

REACTIONS (4)
  - FOREIGN BODY [None]
  - BLOOD CHOLESTEROL INCREASED [None]
  - BLOOD TRIGLYCERIDES INCREASED [None]
  - THERAPY CESSATION [None]
